FAERS Safety Report 5713108-5 (Version None)
Quarter: 2008Q2

REPORT INFORMATION
  Report Type: 
  Country: None (occurrence: None)
  Receive Date: 20080422
  Receipt Date: 20080410
  Transmission Date: 20081010
  Serious: Yes (Hospitalization, Disabling)
  Sender: FDA-Public Use
  Company Number: CH-SANOFI-SYNTHELABO-A01200804157

PATIENT
  Age: 84 Year
  Sex: Female

DRUGS (9)
  1. KALIUM [Concomitant]
     Indication: DRUG USE FOR UNKNOWN INDICATION
     Route: 048
  2. MAGNESIUM [Concomitant]
     Indication: DRUG USE FOR UNKNOWN INDICATION
     Route: 048
  3. VITAMIN D [Concomitant]
     Indication: DRUG USE FOR UNKNOWN INDICATION
     Route: 048
  4. SERESTA [Concomitant]
     Indication: DRUG USE FOR UNKNOWN INDICATION
     Route: 048
  5. OMEZOL [Concomitant]
     Indication: DRUG USE FOR UNKNOWN INDICATION
     Route: 048
  6. AMLODIPINE [Concomitant]
     Indication: ESSENTIAL HYPERTENSION
     Route: 048
  7. SYMFONA [Interacting]
     Indication: DEMENTIA
     Route: 048
  8. PLAVIX [Interacting]
     Indication: PERIPHERAL ARTERIAL OCCLUSIVE DISEASE
     Route: 048
     Dates: end: 20080309
  9. COMILORID [Suspect]
     Indication: ESSENTIAL HYPERTENSION
     Dosage: 50 MG/5 MG
     Route: 048
     Dates: end: 20080309

REACTIONS (8)
  - BACTERIA URINE IDENTIFIED [None]
  - BRAIN COMPRESSION [None]
  - DRUG INTERACTION [None]
  - FALL [None]
  - GENERAL PHYSICAL HEALTH DETERIORATION [None]
  - INAPPROPRIATE ANTIDIURETIC HORMONE SECRETION [None]
  - INFECTION [None]
  - SUBDURAL HAEMATOMA [None]
